FAERS Safety Report 5824172-7 (Version None)
Quarter: 2008Q3

REPORT INFORMATION
  Report Type: 
  Country: None (occurrence: None)
  Receive Date: 20080718
  Receipt Date: 20080604
  Transmission Date: 20090109
  Serious: Yes (Other)
  Sender: FDA-Public Use
  Company Number: US-WYE-H04388208

PATIENT
  Age: 87 Year
  Sex: Male
  Weight: 74.91 kg

DRUGS (5)
  1. ADVIL PM [Suspect]
     Indication: INSOMNIA
     Dosage: 1 CAPSULE 1X PER 1 DAY, ORAL
     Route: 048
     Dates: start: 20080603
  2. ADVIL PM [Suspect]
     Indication: PAIN
     Dosage: 1 CAPSULE 1X PER 1 DAY, ORAL
     Route: 048
     Dates: start: 20080603
  3. FLOMAX [Concomitant]
  4. OSTEO BIFLEX TRIPLE STRENGTH (GLUCOSAMINE HYDROCHLORIDE/CHONDROITIN SU [Concomitant]
  5. TERBINAFINE HYDROCHLORIDE [Concomitant]

REACTIONS (1)
  - ORAL DISCOMFORT [None]
